FAERS Safety Report 5034503-6 (Version None)
Quarter: 2006Q2

REPORT INFORMATION
  Report Type: 
  Country: None (occurrence: None)
  Receive Date: 20060626
  Receipt Date: 20060613
  Transmission Date: 20061013
  Serious: Yes (Other)
  Sender: FDA-Public Use
  Company Number: PHBS2006MX08966

PATIENT

DRUGS (1)
  1. ZELMAC [Suspect]
     Dosage: 6 MG, UNK
     Route: 048

REACTIONS (1)
  - DIARRHOEA [None]
